FAERS Safety Report 18604037 (Version 1)
Quarter: 2020Q4

REPORT INFORMATION
  Report Type: Report from Study
  Country: FR (occurrence: FR)
  Receive Date: 20201211
  Receipt Date: 20201211
  Transmission Date: 20210114
  Serious: Yes (Other)
  Sender: FDA-Public Use
  Company Number: FR-JNJFOC-20201138444

PATIENT

DRUGS (2)
  1. SECUKINUMAB. [Suspect]
     Active Substance: SECUKINUMAB
     Indication: PSORIATIC ARTHROPATHY
     Route: 065
  2. STELARA [Suspect]
     Active Substance: USTEKINUMAB
     Indication: PSORIATIC ARTHROPATHY
     Route: 058

REACTIONS (9)
  - Infection [Unknown]
  - Drug ineffective [Unknown]
  - Diarrhoea [Unknown]
  - Neoplasm malignant [Unknown]
  - Chest pain [Unknown]
  - Hypersensitivity [Unknown]
  - Cutaneous vasculitis [Unknown]
  - Suicidal ideation [Unknown]
  - Abdominal pain [Unknown]
